FAERS Safety Report 10629808 (Version 1)
Quarter: 2014Q4

REPORT INFORMATION
  Report Type: Spontaneous
  Country: US (occurrence: US)
  Receive Date: 20141205
  Receipt Date: 20141205
  Transmission Date: 20150529
  Serious: No
  Sender: FDA-Public Use
  Company Number: US-BRISTOL-MYERS SQUIBB COMPANY-20755401

PATIENT
  Age: 56 Year
  Sex: Female
  Weight: 106.12 kg

DRUGS (1)
  1. BYETTA [Suspect]
     Active Substance: EXENATIDE
     Indication: GLUCOSE TOLERANCE IMPAIRED
     Dosage: INITIAL DOSE 5MCG FOR 2 MONTHS
     Route: 058

REACTIONS (2)
  - Product quality issue [Unknown]
  - Incorrect dose administered [Unknown]
